FAERS Safety Report 4274639-0 (Version None)
Quarter: 2004Q1

REPORT INFORMATION
  Report Type: 
  Country: None (occurrence: None)
  Receive Date: 20040115
  Receipt Date: 20040105
  Transmission Date: 20041129
  Serious: Yes (Hospitalization)
  Sender: FDA-Public Use
  Company Number: 2004CG0031

PATIENT
  Age: 62 Year
  Sex: Female
  Weight: 71 kg

DRUGS (2)
  1. TENORMIN [Suspect]
     Indication: HYPERTENSION
     Dosage: 1 DF QD PO
     Route: 048
     Dates: start: 19950701
  2. LEVOTHYROX [Suspect]
     Indication: THYROIDECTOMY
     Dates: start: 19950701

REACTIONS (10)
  - C-REACTIVE PROTEIN INCREASED [None]
  - ECZEMA [None]
  - ERYTHEMA [None]
  - HEPATIC STEATOSIS [None]
  - LIGHT CHAIN ANALYSIS INCREASED [None]
  - PRURIGO [None]
  - PRURITUS [None]
  - RASH GENERALISED [None]
  - RENAL CYST [None]
  - SKIN LESION [None]
